FAERS Safety Report 7898087-7 (Version None)
Quarter: 2011Q4

REPORT INFORMATION
  Report Type: 
  Country: None (occurrence: None)
  Receive Date: 20111107
  Receipt Date: 20111104
  Transmission Date: 20120403
  Serious: Yes (Hospitalization, Other)
  Sender: FDA-Public Use
  Company Number: JP-PFIZER INC-2011189754

PATIENT
  Age: 12 Month
  Sex: Male
  Weight: 10.5 kg

DRUGS (6)
  1. MUCODYNE [Concomitant]
     Indication: ASTHMA
     Dosage: 115 MG, 3X/DAY
     Dates: start: 20101101
  2. SOLU-MEDROL [Suspect]
     Indication: STATUS ASTHMATICUS
     Dosage: 0.012 G, 4X/DAY
     Route: 041
     Dates: start: 20110813, end: 20110817
  3. MEPTIN INHALATION SOLUTION [Concomitant]
     Indication: ASTHMA
     Dosage: 0.02 MG, 3X/DAY
     Dates: start: 20110813, end: 20110817
  4. ONON [Concomitant]
     Indication: ASTHMA
     Dosage: 45 MG, 2X/DAY
     Dates: start: 20101101
  5. HOKUNALIN TAPE [Concomitant]
     Indication: ASTHMA
     Dosage: 0.5 MG, 1X/DAY
     Dates: start: 20101101
  6. ZITHROMAX [Concomitant]
     Indication: PNEUMONIA MYCOPLASMAL
     Dosage: 120 MG, 1X/DAY
     Route: 048
     Dates: start: 20110813, end: 20110815

REACTIONS (1)
  - HEPATOMEGALY [None]
